FAERS Safety Report 7504877-2 (Version None)
Quarter: 2011Q2

REPORT INFORMATION
  Report Type: 
  Country: None (occurrence: None)
  Receive Date: 20110526
  Receipt Date: 20110519
  Transmission Date: 20111010
  Serious: Yes (Other)
  Sender: FDA-Public Use
  Company Number: CH-BIOGENIDEC-2010BI040035

PATIENT
  Age: 33 Year
  Sex: Female

DRUGS (2)
  1. CLONAZEPAM [Concomitant]
     Route: 064
     Dates: start: 20081201, end: 20100623
  2. TYSABRI [Suspect]
     Indication: PRODUCT USED FOR UNKNOWN INDICATION
     Route: 064
     Dates: start: 20100526, end: 20100626

REACTIONS (6)
  - MULTIPLE SCLEROSIS RELAPSE [None]
  - PREMATURE SEPARATION OF PLACENTA [None]
  - DEPRESSION [None]
  - STILLBIRTH [None]
  - PRE-ECLAMPSIA [None]
  - PNEUMONIA INFLUENZAL [None]
